FAERS Safety Report 9539899 (Version 1)
Quarter: 2013Q2

REPORT INFORMATION
  Report Type: Spontaneous
  Country: US (occurrence: None)
  Receive Date: 20130524
  Receipt Date: 20130524
  Transmission Date: 20140414
  Serious: Yes (Other)
  Sender: FDA-Public Use
  Company Number: PHEH2013US001664

PATIENT
  Age: 59 Year
  Sex: Male
  Weight: 78.9 kg

DRUGS (6)
  1. GILENYA (FINGOLIMOD) CAPSULE, 0.5MG [Suspect]
     Indication: MULTIPLE SCLEROSIS
     Route: 048
     Dates: start: 20110511
  2. LEVOTHYROXINE (LEVOTHYROXINE) [Concomitant]
  3. KEPPRA (LEVETIRACETAM) [Concomitant]
  4. NIACIN (NICOTINIC ACID) [Concomitant]
  5. SIMVASTATIN (SIMVASTATIN) [Concomitant]
  6. ZANAFLEX (TIZANIDINE HYDROCHLORIDE) [Concomitant]

REACTIONS (1)
  - Bronchitis [None]
